FAERS Safety Report 6733102-5 (Version None)
Quarter: 2010Q2

REPORT INFORMATION
  Report Type: 
  Country: None (occurrence: None)
  Receive Date: 20100518
  Receipt Date: 20100505
  Transmission Date: 20101027
  Serious: Yes (Death, Hospitalization)
  Sender: FDA-Public Use
  Company Number: 2010AC000106

PATIENT
  Age: 31 Year
  Sex: Male

DRUGS (9)
  1. DIGOXIN [Suspect]
     Dosage: 0.25 MG;QD;PO
     Route: 048
     Dates: start: 20041221, end: 20080101
  2. WARFARIN [Concomitant]
  3. TOPROL-XL [Concomitant]
  4. PRILOSEC [Concomitant]
  5. WELLBUTRIN [Concomitant]
  6. NEXIUM [Concomitant]
  7. ZESTRIL [Concomitant]
  8. AMOXICILLIN [Concomitant]
  9. DILTIAZEM HCL [Concomitant]

REACTIONS (12)
  - AORTIC VALVE INCOMPETENCE [None]
  - DILATATION VENTRICULAR [None]
  - DIZZINESS [None]
  - HAEMATURIA [None]
  - HYPOAESTHESIA [None]
  - OROPHARYNGEAL PAIN [None]
  - PANIC ATTACK [None]
  - RENAL FAILURE [None]
  - TREATMENT NONCOMPLIANCE [None]
  - TRICUSPID VALVE INCOMPETENCE [None]
  - URINARY TRACT INFECTION [None]
  - VENTRICULAR EXTRASYSTOLES [None]
